FAERS Safety Report 12353994 (Version 1)
Quarter: 2016Q2

REPORT INFORMATION
  Report Type: Spontaneous
  Country: US (occurrence: None)
  Receive Date: 20160510
  Receipt Date: 20160510
  Transmission Date: 20160815
  Serious: Yes (Other)
  Sender: FDA-Public Use
  Company Number: None

PATIENT
  Age: 50 Year
  Sex: Male

DRUGS (2)
  1. STIVARGA [Suspect]
     Active Substance: REGORAFENIB
     Indication: COLON CANCER
     Route: 048
     Dates: start: 20151028, end: 20160420
  2. ENOXAPARIN 120 GENERIC [Suspect]
     Active Substance: ENOXAPARIN
     Indication: COLON CANCER
     Dosage: 120 SQ DAILY
     Route: 058
     Dates: start: 20141125, end: 20160420

REACTIONS (1)
  - Death [None]

NARRATIVE: CASE EVENT DATE: 20160421
